FAERS Safety Report 9145891 (Version 1)
Quarter: 2013Q1

REPORT INFORMATION
  Report Type: Spontaneous
  Country: IT (occurrence: IT)
  Receive Date: 20130307
  Receipt Date: 20130307
  Transmission Date: 20140127
  Serious: Yes (Hospitalization)
  Sender: FDA-Public Use
  Company Number: IT-BAYER-2013-025650

PATIENT
  Age: 59 Year
  Sex: Male

DRUGS (4)
  1. CIPROXIN RM [Suspect]
     Indication: PNEUMONITIS
     Dosage: 1000 MG, QD
     Route: 048
     Dates: start: 20130110, end: 20130131
  2. TORA-DOL [Interacting]
     Indication: BACK PAIN
     Dosage: 10 MG, ONCE
     Route: 030
     Dates: start: 20130202, end: 20130202
  3. ACETYLSALICYLIC ACID [Concomitant]
     Dosage: 100 MG, QD
     Route: 048
  4. PANTOPRAZOLE [Concomitant]
     Dosage: UNK
     Route: 048

REACTIONS (2)
  - Renal failure acute [Recovering/Resolving]
  - Drug interaction [Recovering/Resolving]
